FAERS Safety Report 19323219 (Version 3)
Quarter: 2022Q3

REPORT INFORMATION
  Report Type: Other
  Country: AR (occurrence: AR)
  Receive Date: 20210528
  Receipt Date: 20220725
  Transmission Date: 20221027
  Serious: Yes (Other)
  Sender: FDA-Public Use
  Company Number: AR-002147023-NVSC2021AR083433

PATIENT
  Age: 10 Year
  Sex: Male

DRUGS (4)
  1. XOLAIR [Suspect]
     Active Substance: OMALIZUMAB
     Indication: Asthma
     Dosage: MOST RECENT DOSE RECEIVED ON 30/JAN/2020
     Route: 058
     Dates: start: 20170403
  2. XOLAIR [Suspect]
     Active Substance: OMALIZUMAB
     Route: 058
     Dates: start: 202205
  3. ALBUTEROL [Concomitant]
     Active Substance: ALBUTEROL
     Indication: Product used for unknown indication
     Dosage: 3 DF, EVERY 20 MINUTES
  4. HYDROCORTISONE [Concomitant]
     Active Substance: HYDROCORTISONE
     Indication: Product used for unknown indication

REACTIONS (7)
  - Bronchial obstruction [Unknown]
  - Asthmatic crisis [Unknown]
  - Agitation [Unknown]
  - Hypersensitivity [Unknown]
  - Asthma [Recovering/Resolving]
  - Viral infection [Unknown]
  - Incorrect dose administered [Unknown]

NARRATIVE: CASE EVENT DATE: 20210401
